FAERS Safety Report 6950245 (Version 3)
Quarter: 2014Q1

REPORT INFORMATION
  Report Type: Spontaneous
  Country: US (occurrence: None)
  Receive Date: 20090227
  Receipt Date: 20140304
  Transmission Date: 20141002
  Serious: Yes (Hospitalization, Other)
  Sender: FDA-Public Use
  Company Number: RB-6394-2008

PATIENT
  Sex: Male
  Weight: 3.31 kg

DRUGS (2)
  1. SUBOXONE [Suspect]
     Indication: DRUG DEPENDENCE
     Route: 064
     Dates: end: 200802
  2. SUBUTEX [Suspect]
     Indication: DRUG DEPENDENCE
     Dosage: 2 MG TRANSPLACENTAL
     Route: 064
     Dates: start: 200802, end: 20081107

REACTIONS (2)
  - Drug withdrawal syndrome neonatal [None]
  - Foetal exposure during pregnancy [None]
